FAERS Safety Report 8033005-2 (Version None)
Quarter: 2012Q1

REPORT INFORMATION
  Report Type: 
  Country: None (occurrence: None)
  Receive Date: 20120110
  Receipt Date: 20120109
  Transmission Date: 20120608
  Serious: Yes (Life-Threatening, Other)
  Sender: FDA-Public Use
  Company Number: US-JNJFOC-20111102431

PATIENT
  Sex: Female
  Weight: 88.91 kg

DRUGS (1)
  1. NUCYNTA ER [Suspect]
     Indication: PAIN
     Dosage: THRICE DAILY
     Route: 048
     Dates: start: 20111028, end: 20111029

REACTIONS (1)
  - ANAPHYLACTIC REACTION [None]
